FAERS Safety Report 8082094-8 (Version None)
Quarter: 2012Q1

REPORT INFORMATION
  Report Type: 
  Country: None (occurrence: None)
  Receive Date: 20120127
  Receipt Date: 20110225
  Transmission Date: 20120608
  Serious: No
  Sender: FDA-Public Use
  Company Number: US-ABBOTT-11P-163-0708066-00

PATIENT
  Sex: Female

DRUGS (5)
  1. IRON [Concomitant]
     Indication: MINERAL SUPPLEMENTATION
  2. MULTI-VITAMINS [Concomitant]
     Indication: VITAMIN SUPPLEMENTATION
  3. PENTASA [Concomitant]
     Indication: CROHN'S DISEASE
  4. HUMIRA [Suspect]
     Indication: CROHN'S DISEASE
     Dates: start: 20090901
  5. VITAMIN B-12 [Concomitant]
     Indication: VITAMIN SUPPLEMENTATION

REACTIONS (3)
  - CONSTIPATION [None]
  - INTESTINAL OBSTRUCTION [None]
  - RECTAL HAEMORRHAGE [None]
